FAERS Safety Report 13351259 (Version 1)
Quarter: 2017Q1

REPORT INFORMATION
  Report Type: Report from Study
  Country: KR (occurrence: KR)
  Receive Date: 20170320
  Receipt Date: 20170320
  Transmission Date: 20170429
  Serious: Yes (Hospitalization, Other)
  Sender: FDA-Public Use
  Company Number: KR-INCYTE CORPORATION-2017IN001939

PATIENT
  Age: 73 Year
  Sex: Male
  Weight: 55.1 kg

DRUGS (3)
  1. HYDRINE [Concomitant]
     Indication: PRODUCT USED FOR UNKNOWN INDICATION
     Dosage: 500 MG, UNK
     Route: 065
     Dates: start: 20151221
  2. ASPIRIN. [Concomitant]
     Active Substance: ASPIRIN
     Indication: PROPHYLAXIS
     Dosage: 100 MG, UNK
     Route: 065
     Dates: start: 20100906
  3. JAKAVI [Suspect]
     Active Substance: RUXOLITINIB
     Indication: POLYCYTHAEMIA VERA
     Dosage: 20 MG, UNK
     Route: 048
     Dates: start: 20170202

REACTIONS (26)
  - International normalised ratio increased [Unknown]
  - Activated partial thromboplastin time prolonged [Unknown]
  - Haematocrit increased [Unknown]
  - Lymphocyte count decreased [Unknown]
  - Blood sodium increased [Unknown]
  - Haemorrhage [Recovered/Resolved]
  - Neutrophil count increased [Unknown]
  - White blood cell count increased [Unknown]
  - Blood uric acid increased [Unknown]
  - Mean cell haemoglobin decreased [Unknown]
  - Red blood cell count increased [Unknown]
  - Eosinophil count decreased [Unknown]
  - Blood alkaline phosphatase increased [Unknown]
  - Haematochezia [Recovered/Resolved]
  - Platelet count increased [Unknown]
  - Blood calcium decreased [Unknown]
  - Blood phosphorus increased [Unknown]
  - Blood potassium increased [Unknown]
  - Prothrombin level decreased [Unknown]
  - Monocyte count decreased [Unknown]
  - Blood fibrinogen decreased [Unknown]
  - Mean cell volume increased [Unknown]
  - Glomerular filtration rate decreased [Unknown]
  - Haemoglobin increased [Unknown]
  - Mean cell haemoglobin concentration decreased [Unknown]
  - Red cell distribution width increased [Unknown]

NARRATIVE: CASE EVENT DATE: 20170207
